FAERS Safety Report 9500765 (Version 2)
Quarter: 2013Q4

REPORT INFORMATION
  Report Type: Spontaneous
  Country: IT (occurrence: IT)
  Receive Date: 20130905
  Receipt Date: 20131017
  Transmission Date: 20140711
  Serious: Yes (Hospitalization)
  Sender: FDA-Public Use
  Company Number: IT-ROCHE-1268928

PATIENT
  Age: 78 Year
  Sex: Female

DRUGS (1)
  1. DIAZEPAM [Suspect]
     Indication: PRODUCT USED FOR UNKNOWN INDICATION
     Route: 048
     Dates: start: 20130806, end: 20130806

REACTIONS (2)
  - Drug abuse [Unknown]
  - Loss of consciousness [Recovered/Resolved]
